FAERS Safety Report 12442653 (Version 4)
Quarter: 2016Q4

REPORT INFORMATION
  Report Type: Spontaneous
  Country: US (occurrence: US)
  Receive Date: 20160607
  Receipt Date: 20161206
  Transmission Date: 20170207
  Serious: Yes (Hospitalization)
  Sender: FDA-Public Use
  Company Number: US-MALLINCKRODT-T201602193

PATIENT
  Age: 6 Year
  Sex: Female

DRUGS (6)
  1. GABLOFEN [Suspect]
     Active Substance: BACLOFEN
     Indication: MUSCLE SPASTICITY
     Dosage: 1000 MCG/ML; 225 MCG/DAY
     Route: 037
     Dates: end: 20160713
  2. GABLOFEN [Suspect]
     Active Substance: BACLOFEN
     Dosage: 500 MCG/ML; 125 MCG/DAY
     Route: 037
  3. GABLOFEN [Suspect]
     Active Substance: BACLOFEN
     Dosage: 2000MCG/ML, 175MCG/DAY
     Route: 037
  4. LIORESAL [Suspect]
     Active Substance: BACLOFEN
     Dosage: 175 ?G, QD
  5. LIORESAL [Suspect]
     Active Substance: BACLOFEN
     Indication: MUSCLE SPASTICITY
     Dosage: 150 ?G, QD
     Route: 037
  6. GABLOFEN [Suspect]
     Active Substance: BACLOFEN
     Dosage: 2000 MCG/ML; 150 MCG/DAY
     Route: 037
     Dates: start: 20160713

REACTIONS (9)
  - Clonus [Recovered/Resolved]
  - Myalgia [Unknown]
  - Withdrawal syndrome [Recovered/Resolved]
  - Irritability [Recovered/Resolved]
  - Muscle spasticity [Recovered/Resolved]
  - Musculoskeletal stiffness [Unknown]
  - Insomnia [Unknown]
  - Device issue [Recovered/Resolved]
  - Malaise [Unknown]

NARRATIVE: CASE EVENT DATE: 20160424
